FAERS Safety Report 21901611 (Version 2)
Quarter: 2023Q2

REPORT INFORMATION
  Report Type: Spontaneous
  Country: US (occurrence: US)
  Receive Date: 20230124
  Receipt Date: 20230407
  Transmission Date: 20230722
  Serious: Yes (Hospitalization, Other)
  Sender: FDA-Public Use
  Company Number: US-NOVOPROD-1013678

PATIENT
  Age: 70 Year
  Sex: Female

DRUGS (7)
  1. LEVEMIR [Suspect]
     Active Substance: INSULIN DETEMIR
     Dosage: 10 IU
     Route: 058
  2. LEVEMIR [Suspect]
     Active Substance: INSULIN DETEMIR
     Indication: Type 1 diabetes mellitus
     Dosage: 7 IU
     Route: 058
  3. NOVOLOG [Suspect]
     Active Substance: INSULIN ASPART
     Indication: Type 1 diabetes mellitus
     Dosage: 6-8 IU
     Route: 058
  4. ACETAMINOPHEN [Concomitant]
     Active Substance: ACETAMINOPHEN
     Indication: Product used for unknown indication
     Dosage: 2 TABLETS IN AM
     Route: 048
  5. ACETAMINOPHEN AND CODEINE [Concomitant]
     Active Substance: ACETAMINOPHEN\CODEINE PHOSPHATE
     Indication: Product used for unknown indication
     Dosage: 1 TAB AT BEDTIME AS NEEDED FOR PAIN
     Route: 048
  6. ASPIRIN [Concomitant]
     Active Substance: ASPIRIN
     Indication: Product used for unknown indication
     Dosage: 1 TAB DAILY
     Route: 048
  7. MINERALS\VITAMINS [Concomitant]
     Active Substance: MINERALS\VITAMINS
     Indication: Product used for unknown indication
     Dosage: 1 TAB DAILY
     Route: 048

REACTIONS (3)
  - Accident [Unknown]
  - Fibula fracture [Unknown]
  - Glycosylated haemoglobin increased [Unknown]

NARRATIVE: CASE EVENT DATE: 20220801
